FAERS Safety Report 23124267 (Version 1)
Quarter: 2023Q4

REPORT INFORMATION
  Report Type: Spontaneous
  Country: US (occurrence: None)
  Receive Date: 20231027
  Receipt Date: 20231027
  Transmission Date: 20240109
  Serious: Yes (Disabling)
  Sender: FDA-Public Use
  Company Number: None

PATIENT
  Age: 71 Year
  Sex: Male
  Weight: 72.9 kg

DRUGS (8)
  1. ZYRTEC [Suspect]
     Active Substance: CETIRIZINE HYDROCHLORIDE
     Indication: Pruritus
     Dosage: OTHER QUANTITY : 1 TABLET(S);?FREQUENCY : DAILY;?
     Route: 048
     Dates: start: 20080101, end: 20231008
  2. CETIRIZINE HYDROCHLORIDE [Suspect]
     Active Substance: CETIRIZINE HYDROCHLORIDE
  3. ROSUVASTATIN [Concomitant]
     Active Substance: ROSUVASTATIN
  4. Dorzolamide HCL-Timolol Maleate 2.23%-0.68% SOL [Concomitant]
  5. Latanoprost .005% SOL [Concomitant]
  6. MULTI-VITAMIN [Concomitant]
     Active Substance: .ALPHA.-TOCOPHEROL ACETATE, DL-\ASCORBIC ACID\CYANOCOBALAMIN\FLUORIDE ION\FOLIC ACID\NIACIN\PYRIDOXI
  7. VITAMIN C [Concomitant]
     Active Substance: ASCORBIC ACID
  8. VITAMIN D [Concomitant]
     Active Substance: VITAMIN D NOS

REACTIONS (2)
  - Pruritus [None]
  - Skin burning sensation [None]

NARRATIVE: CASE EVENT DATE: 20231010
